FAERS Safety Report 7921546-5 (Version None)
Quarter: 2011Q4

REPORT INFORMATION
  Report Type: 
  Country: None (occurrence: None)
  Receive Date: 20111117
  Receipt Date: 20111109
  Transmission Date: 20120403
  Serious: Yes (Other)
  Sender: FDA-Public Use
  Company Number: US-US-EMD SERONO, INC.-7090601

PATIENT
  Sex: Female

DRUGS (4)
  1. LEXAPRO [Concomitant]
     Indication: DEPRESSION
  2. IBUPROFEN [Concomitant]
  3. REBIF [Suspect]
     Indication: MULTIPLE SCLEROSIS
     Route: 058
     Dates: start: 20110325, end: 20110701
  4. REBIF [Suspect]
     Route: 058
     Dates: start: 20110701

REACTIONS (9)
  - PYREXIA [None]
  - PAIN [None]
  - INJECTION SITE ERYTHEMA [None]
  - RENAL CYST [None]
  - ARTHRALGIA [None]
  - HEPATIC ENZYME INCREASED [None]
  - FATIGUE [None]
  - DEPRESSION [None]
  - INJECTION SITE HAEMATOMA [None]
